FAERS Safety Report 6226082-2 (Version None)
Quarter: 2009Q2

REPORT INFORMATION
  Report Type: 
  Country: None (occurrence: None)
  Receive Date: 20090612
  Receipt Date: 20090507
  Transmission Date: 20091009
  Serious: Yes (Other)
  Sender: FDA-Public Use
  Company Number: US-ABBOTT-09P-163-0572287-00

PATIENT
  Sex: Female
  Weight: 93.07 kg

DRUGS (6)
  1. HUMIRA [Suspect]
     Indication: PSORIASIS
     Route: 058
     Dates: start: 20081020
  2. HUMIRA [Suspect]
     Indication: PSORIATIC ARTHROPATHY
  3. TYLENOL (CAPLET) [Concomitant]
     Indication: PAIN
     Dosage: TAKES UP TO 1000MG DAILY PRN
     Route: 048
  4. METHOTREXATE [Concomitant]
     Indication: DRUG USE FOR UNKNOWN INDICATION
     Dosage: 30 MG WEEKLY
     Route: 048
  5. HYDROXIZINE [Concomitant]
     Indication: DRUG USE FOR UNKNOWN INDICATION
     Route: 048
  6. VICODIN [Concomitant]
     Indication: PAIN
     Dosage: 5/500MG PER PILL
     Route: 048

REACTIONS (3)
  - COUGH [None]
  - DRUG DOSE OMISSION [None]
  - SYSTEMIC LUPUS ERYTHEMATOSUS [None]
